FAERS Safety Report 11416768 (Version 17)
Quarter: 2018Q4

REPORT INFORMATION
  Report Type: Report from Study
  Country: US (occurrence: US)
  Receive Date: 20150825
  Receipt Date: 20181218
  Transmission Date: 20190204
  Serious: Yes (Hospitalization, Other)
  Sender: FDA-Public Use
  Company Number: US-ACTELION-A-US2015-122774

PATIENT
  Age: 76 Year
  Sex: Female

DRUGS (14)
  1. FUROSEMIDE. [Concomitant]
     Active Substance: FUROSEMIDE
  2. PROAIR HFA [Concomitant]
     Active Substance: ALBUTEROL SULFATE
  3. OPSUMIT [Suspect]
     Active Substance: MACITENTAN
     Indication: PULMONARY ARTERIAL HYPERTENSION
     Dosage: 10 MG, UNK
     Route: 048
     Dates: start: 20150527
  4. ENBREL [Concomitant]
     Active Substance: ETANERCEPT
  5. PANTOPRAZOLE [Concomitant]
     Active Substance: PANTOPRAZOLE
  6. SPIRONOLACTONE. [Concomitant]
     Active Substance: SPIRONOLACTONE
  7. OPSUMIT [Suspect]
     Active Substance: MACITENTAN
     Dosage: 10 MG, UNK
     Route: 048
  8. OPSUMIT [Suspect]
     Active Substance: MACITENTAN
     Dosage: 10 MG, QD
     Route: 048
     Dates: start: 20180120
  9. LISINOPRIL. [Concomitant]
     Active Substance: LISINOPRIL
  10. HYDROXYCHLOROQUINE [Concomitant]
     Active Substance: HYDROXYCHLOROQUINE
  11. SPIRIVA [Concomitant]
     Active Substance: TIOTROPIUM BROMIDE MONOHYDRATE
  12. REVATIO [Concomitant]
     Active Substance: SILDENAFIL CITRATE
  13. MONTELUKAST [Concomitant]
     Active Substance: MONTELUKAST SODIUM
  14. SYMBICORT [Concomitant]
     Active Substance: BUDESONIDE\FORMOTEROL FUMARATE DIHYDRATE

REACTIONS (31)
  - Acute respiratory failure [Unknown]
  - Product dose omission [Unknown]
  - Left ventricular failure [Recovered/Resolved with Sequelae]
  - Pulmonary fibrosis [Recovered/Resolved with Sequelae]
  - Chronic obstructive pulmonary disease [Not Recovered/Not Resolved]
  - Incoherent [Unknown]
  - Hypotension [Not Recovered/Not Resolved]
  - Hypomagnesaemia [Recovered/Resolved]
  - Lower respiratory tract infection [Recovered/Resolved]
  - Aspartate aminotransferase increased [Unknown]
  - Non-cardiac chest pain [Not Recovered/Not Resolved]
  - Obstructive airways disorder [Unknown]
  - Condition aggravated [Recovered/Resolved with Sequelae]
  - H1N1 influenza [Unknown]
  - H2N2 influenza [Unknown]
  - Hypokalaemia [Recovered/Resolved]
  - Dyspnoea [Unknown]
  - Cough [Unknown]
  - Pain in extremity [Not Recovered/Not Resolved]
  - Productive cough [Not Recovered/Not Resolved]
  - Hypertension [Unknown]
  - Pulmonary hypertension [Unknown]
  - Myalgia [Not Recovered/Not Resolved]
  - Loss of consciousness [Not Recovered/Not Resolved]
  - Lethargy [Not Recovered/Not Resolved]
  - Pneumothorax [Unknown]
  - Hypoxia [Unknown]
  - Oxygen saturation decreased [Not Recovered/Not Resolved]
  - Oedema [Unknown]
  - Pleural effusion [Recovered/Resolved]
  - Pneumonia [Unknown]

NARRATIVE: CASE EVENT DATE: 20150905
